FAERS Safety Report 23211166 (Version 1)
Quarter: 2023Q4

REPORT INFORMATION
  Report Type: Spontaneous
  Country: US (occurrence: US)
  Receive Date: 20231121
  Receipt Date: 20231121
  Transmission Date: 20240109
  Serious: No
  Sender: FDA-Public Use
  Company Number: US-SA-SAC20231117000437

PATIENT
  Sex: Male
  Weight: 105 kg

DRUGS (2)
  1. DUPIXENT [Suspect]
     Active Substance: DUPILUMAB
     Indication: Dermatitis atopic
     Dosage: FREQUENCY:-EVERY OTHER WEEK DOSE AND ROUTE:-300 MG INJECT UNDER THE SKIN
     Route: 058
  2. CIBINQO [Concomitant]
     Active Substance: ABROCITINIB

REACTIONS (1)
  - Drug ineffective [Unknown]
